FAERS Safety Report 5454182-3 (Version None)
Quarter: 2007Q3

REPORT INFORMATION
  Report Type: 
  Country: None (occurrence: None)
  Receive Date: 20070917
  Receipt Date: 20070531
  Transmission Date: 20080115
  Serious: Yes (Other)
  Sender: FDA-Public Use
  Company Number: US-ASTRAZENECA-2006UW11217

PATIENT
  Sex: Female

DRUGS (7)
  1. SEROQUEL [Suspect]
     Indication: DEPRESSION
     Dosage: 200 MG - 300 MG
     Route: 048
     Dates: start: 20050101, end: 20060201
  2. SEROQUEL [Suspect]
     Indication: OBSESSIVE-COMPULSIVE DISORDER
     Dosage: 200 MG - 300 MG
     Route: 048
     Dates: start: 20050101, end: 20060201
  3. RISPERDAL [Concomitant]
     Route: 048
  4. CLONAZEPAN [Concomitant]
  5. PROZAC [Concomitant]
     Route: 048
  6. TRAZODONE HCL [Concomitant]
     Route: 048
  7. BUTALBITAL [Concomitant]

REACTIONS (2)
  - DIABETES MELLITUS [None]
  - DIABETIC KETOACIDOSIS [None]
